FAERS Safety Report 5588850-X (Version None)
Quarter: 2007Q4

REPORT INFORMATION
  Report Type: 
  Country: None (occurrence: None)
  Receive Date: 20071211
  Receipt Date: 20070924
  Transmission Date: 20080405
  Serious: No
  Sender: FDA-Public Use
  Company Number: 002#2#2007-00352

PATIENT
  Sex: Male
  Weight: 74.8435 kg

DRUGS (1)
  1. NEUPRO-PATCH-DOSE-(ROTIGOTINE) [Suspect]
     Indication: PARKINSON'S DISEASE
     Dosage: MG/24H,1 IN 1 D,TRANSDERMAL
     Route: 062

REACTIONS (2)
  - INSOMNIA [None]
  - PHARMACEUTICAL PRODUCT COMPLAINT [None]
